FAERS Safety Report 7319623-5 (Version None)
Quarter: 2011Q1

REPORT INFORMATION
  Report Type: 
  Country: None (occurrence: None)
  Receive Date: 20110228
  Receipt Date: 20100617
  Transmission Date: 20110831
  Serious: No
  Sender: FDA-Public Use
  Company Number: A0865745A

PATIENT
  Age: 12 Year
  Sex: Male

DRUGS (2)
  1. MULTI-VITAMIN [Concomitant]
  2. LAMOTRIGINE [Suspect]
     Dosage: 25MG TWICE PER DAY
     Route: 048
     Dates: start: 20091201, end: 20091230

REACTIONS (3)
  - DIZZINESS [None]
  - NAUSEA [None]
  - DIARRHOEA [None]
